FAERS Safety Report 4990144-8 (Version None)
Quarter: 2006Q2

REPORT INFORMATION
  Report Type: 
  Country: None (occurrence: None)
  Receive Date: 20060503
  Receipt Date: 20050914
  Transmission Date: 20061013
  Serious: Yes (Hospitalization, Other)
  Sender: FDA-Public Use
  Company Number: US-MERCK-0509USA02216

PATIENT
  Age: 56 Year
  Sex: Female
  Weight: 74 kg

DRUGS (2)
  1. VIOXX [Suspect]
     Indication: INTERVERTEBRAL DISC PROTRUSION
     Route: 048
     Dates: start: 20010901, end: 20040901
  2. VIOXX [Suspect]
     Route: 048
     Dates: start: 20010901, end: 20040901

REACTIONS (9)
  - ANGINA PECTORIS [None]
  - CORONARY ARTERY DISEASE [None]
  - CORONARY ARTERY INSUFFICIENCY [None]
  - DYSPNOEA [None]
  - FATIGUE [None]
  - HYPERTENSION [None]
  - MYOCARDIAL ISCHAEMIA [None]
  - POST PROCEDURAL HAEMORRHAGE [None]
  - SOMNOLENCE [None]
